FAERS Safety Report 23453328 (Version 3)
Quarter: 2024Q2

REPORT INFORMATION
  Report Type: Spontaneous
  Country: ES (occurrence: ES)
  Receive Date: 20240129
  Receipt Date: 20240408
  Transmission Date: 20240715
  Serious: Yes (Other)
  Sender: FDA-Public Use
  Company Number: ES-DSJP-DSE-2024-102014

PATIENT
  Age: 67 Year
  Sex: Female

DRUGS (1)
  1. EDOXABAN TOSYLATE [Suspect]
     Active Substance: EDOXABAN TOSYLATE
     Indication: Product used for unknown indication
     Dosage: 60 MG
     Route: 065
     Dates: start: 20210323, end: 2023

REACTIONS (10)
  - Thrombosis [Recovered/Resolved]
  - Paraesthesia [Unknown]
  - Chromaturia [Unknown]
  - Fluid retention [Unknown]
  - Atrophic glossitis [Unknown]
  - Tongue disorder [Unknown]
  - Tongue discolouration [Unknown]
  - Pain in extremity [Recovered/Resolved]
  - Vein discolouration [Recovered/Resolved]
  - Headache [Unknown]

NARRATIVE: CASE EVENT DATE: 20210323
